FAERS Safety Report 23916829 (Version 1)
Quarter: 2024Q2

REPORT INFORMATION
  Report Type: Spontaneous
  Country: TH (occurrence: TH)
  Receive Date: 20240529
  Receipt Date: 20240529
  Transmission Date: 20240717
  Serious: Yes (Hospitalization, Other)
  Sender: FDA-Public Use
  Company Number: TH-BAUSCH-BL-2024-008069

PATIENT
  Age: 62 Year
  Sex: Female

DRUGS (3)
  1. DEXAMETHASONE [Suspect]
     Active Substance: DEXAMETHASONE
     Indication: Osteosarcoma
     Dosage: FIRST CYCLE OF NEOADJUVANT CHEMOTHERAPY
     Route: 065
  2. CISPLATIN [Suspect]
     Active Substance: CISPLATIN
     Indication: Osteosarcoma
     Route: 065
  3. DOXORUBICIN [Suspect]
     Active Substance: DOXORUBICIN
     Indication: Osteosarcoma
     Route: 065

REACTIONS (10)
  - Enterocolitis [Recovered/Resolved]
  - Diarrhoea [Recovering/Resolving]
  - Vomiting [Recovering/Resolving]
  - Neutropenia [Unknown]
  - Lymphopenia [Recovered/Resolved]
  - Disseminated herpes simplex [Recovered/Resolved]
  - Herpes simplex [Recovered/Resolved]
  - Oral herpes [Recovered/Resolved]
  - Pneumonia viral [Recovered/Resolved]
  - Nausea [Recovering/Resolving]
